FAERS Safety Report 6300561-1 (Version None)
Quarter: 2009Q3

REPORT INFORMATION
  Report Type: 
  Country: None (occurrence: None)
  Receive Date: 20090806
  Receipt Date: 20090223
  Transmission Date: 20100115
  Serious: No
  Sender: FDA-Public Use
  Company Number: US-ABBOTT-09P-163-0559097-00

PATIENT
  Sex: Female
  Weight: 80.812 kg

DRUGS (1)
  1. DEPAKOTE ER [Suspect]
     Indication: BIPOLAR DISORDER
     Dosage: 500MG 2 TABS DAILY
     Dates: start: 20060101

REACTIONS (1)
  - WEIGHT INCREASED [None]
